FAERS Safety Report 12510595 (Version 1)
Quarter: 2016Q2

REPORT INFORMATION
  Report Type: Spontaneous
  Country: US (occurrence: US)
  Receive Date: 20160629
  Receipt Date: 20160629
  Transmission Date: 20160815
  Serious: Yes (Other)
  Sender: FDA-Public Use
  Company Number: US-PFIZER INC-2016320422

PATIENT
  Age: 33 Year
  Sex: Female

DRUGS (1)
  1. VENLAFAXINE HCL [Suspect]
     Active Substance: VENLAFAXINE HYDROCHLORIDE
     Dosage: UNK

REACTIONS (8)
  - Thinking abnormal [Unknown]
  - Suicide attempt [Unknown]
  - Mood swings [Unknown]
  - Drug interaction [Unknown]
  - Physical assault [Unknown]
  - Panic attack [Unknown]
  - Toxicity to various agents [Unknown]
  - Homicide [Unknown]
